FAERS Safety Report 6018878-7 (Version None)
Quarter: 2009Q1

REPORT INFORMATION
  Report Type: 
  Country: None (occurrence: None)
  Receive Date: 20081221
  Receipt Date: 20081221
  Transmission Date: 20090719
  Serious: Yes (Life-Threatening, Hospitalization)
  Sender: FDA-Public Use
  Company Number: None

PATIENT
  Age: 43 Year
  Sex: Male
  Weight: 142.88 kg

DRUGS (1)
  1. INSULIN DETEMIR [Suspect]
     Indication: DIABETES MELLITUS
     Dosage: 150 UNITS BID SQ
     Route: 058
     Dates: start: 20080701, end: 20080804

REACTIONS (2)
  - CARDIAC FAILURE ACUTE [None]
  - RENAL FAILURE ACUTE [None]
